FAERS Safety Report 7671347-0 (Version None)
Quarter: 2011Q3

REPORT INFORMATION
  Report Type: 
  Country: None (occurrence: None)
  Receive Date: 20110809
  Receipt Date: 20110805
  Transmission Date: 20111222
  Serious: Yes (Hospitalization)
  Sender: FDA-Public Use
  Company Number: JP-ABBOTT-11P-087-0714061-00

PATIENT
  Sex: Male
  Weight: 59 kg

DRUGS (14)
  1. HUMIRA [Suspect]
     Route: 058
     Dates: start: 20101230, end: 20101230
  2. COLIBACILLUS VACCINE [Concomitant]
     Indication: ANAL FISTULA
     Route: 061
     Dates: start: 20110223
  3. HUMIRA [Suspect]
     Dates: start: 20110325, end: 20110528
  4. KETOPROFEN [Concomitant]
     Indication: BACK PAIN
     Route: 061
     Dates: start: 20090318, end: 20110525
  5. HUMIRA [Suspect]
     Indication: CROHN'S DISEASE
     Route: 058
     Dates: start: 20101216, end: 20101216
  6. RABEPRAZOLE SODIUM [Concomitant]
     Indication: GASTROOESOPHAGEAL REFLUX DISEASE
     Route: 048
     Dates: start: 20080826
  7. MERCAPTOPURINE [Concomitant]
     Indication: CROHN'S DISEASE
     Dates: start: 20101013, end: 20101223
  8. HUMIRA [Suspect]
     Dates: start: 20110609
  9. EPINASTINE HYDROCHLORIDE [Concomitant]
     Indication: DERMATITIS ATOPIC
     Route: 048
     Dates: start: 20050615
  10. ETIZOLAM [Concomitant]
     Indication: INSOMNIA
     Route: 048
     Dates: start: 20100317
  11. HUMIRA [Suspect]
     Route: 058
     Dates: start: 20110113, end: 20110324
  12. TPN [Concomitant]
     Indication: CROHN'S DISEASE
     Route: 048
  13. DICLOFENAC SODIUM [Concomitant]
     Indication: PRODUCT USED FOR UNKNOWN INDICATION
     Route: 048
  14. ENTERAL NUTRITION [Concomitant]
     Indication: CROHN'S DISEASE

REACTIONS (10)
  - DRUG EFFECT DECREASED [None]
  - PYREXIA [None]
  - MYALGIA [None]
  - HYPOKALAEMIA [None]
  - GAIT DISTURBANCE [None]
  - CROHN'S DISEASE [None]
  - MALAISE [None]
  - ARTHRALGIA [None]
  - BLOOD CREATINE PHOSPHOKINASE INCREASED [None]
  - HEPATIC FUNCTION ABNORMAL [None]
